FAERS Safety Report 9284322 (Version 1)
Quarter: 2013Q2

REPORT INFORMATION
  Report Type: Spontaneous
  Country: US (occurrence: US)
  Receive Date: 20130510
  Receipt Date: 20130510
  Transmission Date: 20140414
  Serious: Yes (Other)
  Sender: FDA-Public Use
  Company Number: US-PFIZER INC-2013145722

PATIENT
  Sex: Female

DRUGS (1)
  1. PRISTIQ [Suspect]
     Indication: MENOPAUSAL DISORDER
     Dosage: UNK

REACTIONS (6)
  - Joint destruction [Unknown]
  - Joint dislocation [Unknown]
  - Arthropathy [Unknown]
  - Arthropathy [Unknown]
  - Arthralgia [Unknown]
  - Temporomandibular joint syndrome [Unknown]
